FAERS Safety Report 20993493 (Version 4)
Quarter: 2023Q1

REPORT INFORMATION
  Report Type: Spontaneous
  Country: ES (occurrence: ES)
  Receive Date: 20220622
  Receipt Date: 20230321
  Transmission Date: 20230417
  Serious: Yes (Other)
  Sender: FDA-Public Use
  Company Number: ES-ELI_LILLY_AND_COMPANY-ES202203002141

PATIENT
  Sex: Female

DRUGS (3)
  1. TERIPARATIDE [Suspect]
     Active Substance: TERIPARATIDE
     Indication: Osteoporosis
     Dosage: UNK UNK, UNKNOWN
     Route: 065
     Dates: start: 202002, end: 20220202
  2. TERIPARATIDE [Suspect]
     Active Substance: TERIPARATIDE
     Indication: Osteoporosis
     Dosage: UNK UNK, UNKNOWN
     Route: 065
     Dates: start: 202002, end: 20220202
  3. CORTISOL [HYDROCORTISONE] [Concomitant]
     Indication: Product used for unknown indication
     Dosage: UNK UNK, UNKNOWN
     Route: 065

REACTIONS (40)
  - Adrenal adenoma [Unknown]
  - Dizziness [Unknown]
  - Cushing^s syndrome [Unknown]
  - Muscular weakness [Unknown]
  - Blood cholesterol increased [Unknown]
  - Depression [Unknown]
  - Pain in extremity [Unknown]
  - Hyperhidrosis [Unknown]
  - Palpitations [Unknown]
  - Heart rate increased [Unknown]
  - Heart sounds abnormal [Unknown]
  - Urinary incontinence [Unknown]
  - Anal incontinence [Unknown]
  - Micturition urgency [Unknown]
  - Weight increased [Recovering/Resolving]
  - Urinary tract infection [Unknown]
  - Myalgia [Unknown]
  - Arthralgia [Unknown]
  - Back pain [Unknown]
  - Peripheral swelling [Unknown]
  - Swelling [Unknown]
  - Fluid retention [Unknown]
  - Mental disorder [Unknown]
  - Oedema [Unknown]
  - Hypertension [Unknown]
  - Diabetes mellitus [Unknown]
  - Hypokalaemia [Unknown]
  - Dehydration [Unknown]
  - Alopecia [Unknown]
  - Limb discomfort [Unknown]
  - Fatigue [Unknown]
  - Asthenia [Unknown]
  - Chest pain [Unknown]
  - Urine calcium increased [Unknown]
  - Blood uric acid increased [Unknown]
  - Muscle spasms [Unknown]
  - Blood calcium increased [Unknown]
  - Dyspnoea [Unknown]
  - Drug ineffective [Unknown]
  - Transaminases increased [Unknown]
